FAERS Safety Report 14434450 (Version 6)
Quarter: 2023Q4

REPORT INFORMATION
  Report Type: Report from Study
  Country: US (occurrence: US)
  Receive Date: 20180124
  Receipt Date: 20231106
  Transmission Date: 20240110
  Serious: Yes (Death, Hospitalization, Other)
  Sender: FDA-Public Use
  Company Number: US-BAUSCH-BL-2018-001463

PATIENT
  Age: 73 Year
  Sex: Male
  Weight: 81.72 kg

DRUGS (17)
  1. XIFAXAN [Suspect]
     Active Substance: RIFAXIMIN
     Indication: Hepatic failure
     Dosage: STARTED FOUR YEARS AGO
     Route: 048
     Dates: start: 2014
  2. XIFAXAN [Suspect]
     Active Substance: RIFAXIMIN
     Indication: Hepatic encephalopathy
     Dosage: RESTARTED AND YET NOT RAN OUT
     Route: 048
  3. XIFAXAN [Suspect]
     Active Substance: RIFAXIMIN
     Route: 048
     Dates: start: 20211022
  4. ATARAX [Suspect]
     Active Substance: HYDROXYZINE HYDROCHLORIDE
     Indication: Pruritus
     Route: 048
  5. FLEXERIL [Concomitant]
     Active Substance: CYCLOBENZAPRINE HYDROCHLORIDE
     Indication: Product used for unknown indication
     Dosage: TAKE 10MG BY MOUTH AT BEDTIME
     Route: 048
  6. FERROUS SULFATE [Concomitant]
     Active Substance: FERROUS SULFATE
     Indication: Product used for unknown indication
     Dosage: TAKE 325 MG (65 MG IRON) BY MOUTH AT DAILY
     Route: 048
  7. FOLVITE [Concomitant]
     Active Substance: FOLIC ACID
     Indication: Product used for unknown indication
     Dosage: TAKE 800 MCG BY MOUTH AT DAILY
     Route: 048
  8. IBUPROFEN [Concomitant]
     Active Substance: IBUPROFEN
     Indication: Product used for unknown indication
     Dosage: TAKE 200 MG BY MOUTH EVERY 6 HOURS AS NEEDED
     Route: 048
  9. CHRONULAC [Concomitant]
     Active Substance: LACTULOSE
     Indication: Hepatic encephalopathy
     Dosage: 10GM /15 ML, TAKE 30ML BY MOUTH 3 TIMES A DAY (5 REFILLS)
     Route: 048
     Dates: start: 20211220
  10. PRILOSEC [Concomitant]
     Active Substance: OMEPRAZOLE MAGNESIUM
     Indication: Gastrooesophageal reflux disease
     Dosage: DELAYED RELEASE CAPSULE TAKE 1 CAPSULE BY MOUTH AT DAILY BEFORE A MEAL (3REFILLS)
     Route: 048
     Dates: start: 20210818
  11. K-DUR [Concomitant]
     Active Substance: POTASSIUM CHLORIDE
     Indication: Muscle spasms
     Dosage: TAKE 20MEQ BY MOUTH AT DAILY
     Route: 048
  12. ALDACTONE [Concomitant]
     Active Substance: SPIRONOLACTONE
     Indication: Product used for unknown indication
     Dosage: TAKE 1 TABLET BY MOUTH AT DAILY 90 TAB 3 REFILLS
     Route: 048
     Dates: start: 20210930
  13. VITAMIN E [Concomitant]
     Active Substance: .ALPHA.-TOCOPHEROL
     Indication: Product used for unknown indication
     Dosage: TAKE 400 UNIT BY MOUTH AT DAILY
     Route: 048
  14. LASIX [Concomitant]
     Active Substance: FUROSEMIDE
     Indication: Product used for unknown indication
     Dosage: TAKE 2 TAB  BY MOUTH DAILY
     Route: 048
     Dates: start: 20220419
  15. VITAMIN B-1 [THIAMINE MONONITRATE] [Concomitant]
     Indication: Product used for unknown indication
     Dosage: TAKE 100 UNIT BY MOUTH AT DAILY
     Route: 048
  16. VITAMIN C [Concomitant]
     Active Substance: ASCORBIC ACID
     Indication: Product used for unknown indication
     Dosage: TAKE 500 UNIT BY MOUTH AT DAILY
     Route: 048
  17. HEPATITIS A VIRUS STRAIN HM175 ANTIGEN (FORMALDEHYDE INACTIVATED) [Concomitant]
     Active Substance: HEPATITIS A VIRUS STRAIN HM175 ANTIGEN (FORMALDEHYDE INACTIVATED)
     Indication: Hepatitis A immunisation

REACTIONS (26)
  - Death [Fatal]
  - Loss of consciousness [Unknown]
  - Gastrointestinal disorder [Unknown]
  - Prostate cancer [Unknown]
  - Portal shunt procedure [Unknown]
  - Internal haemorrhage [Unknown]
  - Ammonia increased [Unknown]
  - COVID-19 [Unknown]
  - Constipation [Unknown]
  - Cerebral disorder [Unknown]
  - Thermal burn [Recovered/Resolved]
  - Confusional state [Unknown]
  - Bronchitis [Unknown]
  - Cognitive disorder [Unknown]
  - Weight decreased [Unknown]
  - Pain [Unknown]
  - Insomnia [Unknown]
  - Abdominal distension [Unknown]
  - Somnolence [Unknown]
  - Nausea [Unknown]
  - Muscle spasms [Not Recovered/Not Resolved]
  - Fatigue [Unknown]
  - Pruritus [Unknown]
  - Product use issue [Unknown]
  - Product distribution issue [Not Recovered/Not Resolved]
  - Inability to afford medication [Unknown]

NARRATIVE: CASE EVENT DATE: 20140201
